FAERS Safety Report 25934702 (Version 2)
Quarter: 2025Q4

REPORT INFORMATION
  Report Type: Spontaneous
  Country: CH (occurrence: CH)
  Receive Date: 20251017
  Receipt Date: 20251114
  Transmission Date: 20260117
  Serious: Yes (Hospitalization, Other)
  Sender: RANBAXY
  Company Number: CH-SUN PHARMACEUTICAL INDUSTRIES LTD-2025R1-532197

PATIENT
  Age: 34 Year
  Sex: Female

DRUGS (3)
  1. ASPIRIN [Suspect]
     Active Substance: ASPIRIN
     Indication: Pre-eclampsia
     Dosage: UNK
     Route: 065
  2. ASPIRIN [Suspect]
     Active Substance: ASPIRIN
     Indication: HELLP syndrome
  3. UNSPECIFIED INGREDIENT [Concomitant]
     Active Substance: UNSPECIFIED INGREDIENT
     Indication: Protein S deficiency
     Dosage: UNK, DAILY
     Route: 065

REACTIONS (2)
  - Foetal growth restriction [Unknown]
  - Exposure during pregnancy [Unknown]
